FAERS Safety Report 5453478-9 (Version None)
Quarter: 2007Q3

REPORT INFORMATION
  Report Type: 
  Country: None (occurrence: None)
  Receive Date: 20070913
  Receipt Date: 20070906
  Transmission Date: 20080115
  Serious: Yes (Death)
  Sender: FDA-Public Use
  Company Number: 2007EN000082

PATIENT
  Age: 46 Year
  Sex: Male

DRUGS (7)
  1. ABELCET [Suspect]
     Indication: LIVER DISORDER
     Dosage: 5 MG/KG; QD; IV
     Route: 042
  2. ABELCET [Suspect]
     Indication: ZYGOMYCOSIS
     Dosage: 5 MG/KG; QD; IV
     Route: 042
  3. CEFTAZIDIME [Concomitant]
  4. FLUCONAZOLE [Concomitant]
  5. IMIPENEM [Concomitant]
  6. CASPOFUNGIN [Concomitant]
  7. POSACONAZOLE [Concomitant]

REACTIONS (13)
  - CONDITION AGGRAVATED [None]
  - ENTEROCOCCAL INFECTION [None]
  - GENERAL PHYSICAL HEALTH DETERIORATION [None]
  - HEPATIC LESION [None]
  - IMPAIRED GASTRIC EMPTYING [None]
  - MUCORMYCOSIS [None]
  - MULTI-ORGAN FAILURE [None]
  - PATHOGEN RESISTANCE [None]
  - RENAL FAILURE [None]
  - SHOCK [None]
  - SPLENIC INFARCTION [None]
  - SPLENOMEGALY [None]
  - ZYGOMYCOSIS [None]
